FAERS Safety Report 21967244 (Version 1)
Quarter: 2023Q1

REPORT INFORMATION
  Report Type: Report from Study
  Country: KR (occurrence: KR)
  Receive Date: 20230208
  Receipt Date: 20230208
  Transmission Date: 20230418
  Serious: Yes (Other)
  Sender: FDA-Public Use
  Company Number: KR-002147023-NVSC2023KR027529

PATIENT
  Age: 63 Year
  Sex: Female

DRUGS (8)
  1. PIQRAY [Suspect]
     Active Substance: ALPELISIB
     Indication: Hormone receptor positive HER2 negative breast cancer
     Dosage: 300 MG, QD
     Route: 048
     Dates: start: 20220929, end: 20221012
  2. PIQRAY [Suspect]
     Active Substance: ALPELISIB
     Dosage: 250 MG, QD
     Route: 048
     Dates: start: 20221020
  3. IRBESARTAN [Concomitant]
     Active Substance: IRBESARTAN
     Indication: Hypertension
     Dosage: 1 DOSAGE FORM, QD
     Route: 048
     Dates: start: 20210223
  4. TEPRA [Concomitant]
     Indication: Hypertension
     Dosage: 1 DOSAGE FORM, QD
     Route: 048
     Dates: start: 20210223
  5. LACTICARE HC [Concomitant]
     Indication: Pruritus
     Dosage: 1 MG, PRN (LOTION, 0.25 G/25 ML)
     Route: 061
     Dates: start: 20221012, end: 20221019
  6. LEVOCETRIN [Concomitant]
     Indication: Rash
     Dosage: 1 DOSAGE FORM, QD
     Route: 048
     Dates: start: 20221012, end: 20221019
  7. DICAMAX [Concomitant]
     Indication: Prophylaxis
     Dosage: 1 DOSAGE FORM, QD (1000)
     Route: 048
     Dates: start: 20211118
  8. ZOLEDRONIC ACID [Concomitant]
     Active Substance: ZOLEDRONIC ACID
     Indication: Prophylaxis
     Dosage: 4 MG, Q4W
     Route: 042
     Dates: start: 20220929

REACTIONS (1)
  - Diabetes mellitus [Not Recovered/Not Resolved]

NARRATIVE: CASE EVENT DATE: 20221013
